FAERS Safety Report 21218418 (Version 1)
Quarter: 2022Q3

REPORT INFORMATION
  Report Type: Spontaneous
  Country: NL (occurrence: NL)
  Receive Date: 20220816
  Receipt Date: 20220816
  Transmission Date: 20221026
  Serious: Yes (Other)
  Sender: FDA-Public Use
  Company Number: None

PATIENT
  Sex: Female

DRUGS (1)
  1. NUVARING [Suspect]
     Active Substance: ETHINYL ESTRADIOL\ETONOGESTREL
     Indication: Contraception
     Dosage: ACCORDING TO ADVICE 3 WEEKS IN, 1 WEEK OUT; STRENGTH: 15/120MCG/24U (2.7/11.7MG)
     Dates: start: 202206

REACTIONS (3)
  - Ectopic pregnancy [Unknown]
  - Pregnancy with contraceptive device [Unknown]
  - Maternal exposure during pregnancy [Unknown]
